FAERS Safety Report 11514581 (Version 1)
Quarter: 2015Q3

REPORT INFORMATION
  Report Type: Spontaneous
  Country: US (occurrence: US)
  Receive Date: 20150916
  Receipt Date: 20150916
  Transmission Date: 20151125
  Serious: No
  Sender: FDA-Public Use
  Company Number: US-ASTRAZENECA-2015SE86987

PATIENT
  Age: 826 Month
  Sex: Female
  Weight: 63.5 kg

DRUGS (5)
  1. UNNAMED SUGAR PILL [Concomitant]
  2. BRILINTA [Suspect]
     Active Substance: TICAGRELOR
     Indication: STENT PLACEMENT
     Dosage: TWO TIMES A DAY
     Route: 048
     Dates: start: 20150803
  3. HUMERA [Concomitant]
     Active Substance: ADALIMUMAB
  4. UNNAMED ANTICOAGULANT [Concomitant]
  5. METHOTREXATE [Concomitant]
     Active Substance: METHOTREXATE
     Indication: RHEUMATOID ARTHRITIS
     Dosage: SIX PILLS EVERY FRIDAY, WEEKLY

REACTIONS (1)
  - Blood glucose increased [Unknown]

NARRATIVE: CASE EVENT DATE: 201508
